FAERS Safety Report 26190242 (Version 1)
Quarter: 2025Q4

REPORT INFORMATION
  Report Type: Spontaneous
  Country: US (occurrence: US)
  Receive Date: 20251223
  Receipt Date: 20251223
  Transmission Date: 20260118
  Serious: Yes (Other)
  Sender: GILEAD
  Company Number: US-GILEAD-2025-0740979

PATIENT
  Age: 26 Year
  Sex: Male

DRUGS (2)
  1. YEZTUGO [Suspect]
     Active Substance: LENACAPAVIR SODIUM
     Indication: Prophylaxis against HIV infection
     Dosage: 1.5 ML (FIRST INJECTION RIGHT SIDE OF ABDOMEN 2-3 INCHES FROM BELLY BUTTON)
     Route: 065
     Dates: start: 20251211
  2. YEZTUGO [Suspect]
     Active Substance: LENACAPAVIR SODIUM
     Indication: Prophylaxis against HIV infection
     Dosage: (TABLET)
     Route: 065
     Dates: start: 20251211

REACTIONS (8)
  - Loss of consciousness [Recovered/Resolved]
  - Oropharyngeal gonococcal infection [Not Recovered/Not Resolved]
  - Anxiety [Unknown]
  - Presyncope [Unknown]
  - Injection site swelling [Unknown]
  - Injection site pain [Recovered/Resolved]
  - Nausea [Recovered/Resolved]
  - Product use complaint [Not Recovered/Not Resolved]

NARRATIVE: CASE EVENT DATE: 20251211
